FAERS Safety Report 4614237-X (Version None)
Quarter: 2005Q1

REPORT INFORMATION
  Report Type: 
  Country: None (occurrence: None)
  Receive Date: 20050315
  Receipt Date: 20050308
  Transmission Date: 20050727
  Serious: Yes (Hospitalization)
  Sender: FDA-Public Use
  Company Number: 2004UW23604

PATIENT
  Age: 85 Year
  Sex: Female
  Weight: 54.431 kg

DRUGS (6)
  1. RHINOCORT [Suspect]
     Dosage: 4 SPRAY QD IN
     Route: 055
     Dates: start: 20041001
  2. RHINOCORT [Suspect]
     Dosage: 2 SPRAY QD IN
     Route: 055
  3. CALCIUM GLUCONATE [Concomitant]
  4. MULTI-VITAMIN [Concomitant]
  5. ASPIRIN [Concomitant]
  6. VITAMIN C [Concomitant]

REACTIONS (12)
  - BLOOD CHLORIDE DECREASED [None]
  - BLOOD PRESSURE INCREASED [None]
  - BLOOD SODIUM DECREASED [None]
  - DRY EYE [None]
  - DRY SKIN [None]
  - DRY THROAT [None]
  - GENERALISED ERYTHEMA [None]
  - LOSS OF CONSCIOUSNESS [None]
  - NASAL DRYNESS [None]
  - THROAT IRRITATION [None]
  - VAGINAL BURNING SENSATION [None]
  - VULVOVAGINAL DRYNESS [None]
